FAERS Safety Report 22726679 (Version 4)
Quarter: 2024Q3

REPORT INFORMATION
  Report Type: Spontaneous
  Country: JP (occurrence: JP)
  Receive Date: 20230720
  Receipt Date: 20240802
  Transmission Date: 20241017
  Serious: Yes (Other)
  Sender: MERCK
  Company Number: JP-ONO-2013JP007773

PATIENT
  Age: 72 Year
  Sex: Male

DRUGS (9)
  1. EMEND [Interacting]
     Active Substance: APREPITANT
     Indication: Prophylaxis of nausea and vomiting
     Dosage: 125 MG, ONCE/DAY (UNK)
     Route: 048
  2. EMEND [Interacting]
     Active Substance: APREPITANT
     Dosage: 80 MG, ONCE/DAY (UNK-UNK)
     Route: 048
  3. IFOSFAMIDE [Interacting]
     Active Substance: IFOSFAMIDE
     Indication: Retroperitoneal abscess
     Dosage: 7.2 GRAM PER SQUARE METRE
     Route: 042
  4. IFOSFAMIDE [Interacting]
     Active Substance: IFOSFAMIDE
     Dosage: 7.7 GRAM PER SQUARE METRE
     Route: 042
  5. IFOSFAMIDE [Interacting]
     Active Substance: IFOSFAMIDE
     Dosage: 7.5 GRAM PER SQUARE METRE
     Route: 042
  6. GRANISETRON [Concomitant]
     Active Substance: GRANISETRON
     Dosage: 1 MG, EVERYDAY
     Route: 042
  7. GRANISETRON [Concomitant]
     Active Substance: GRANISETRON
     Dosage: 3 MG, EVERYDAY
     Route: 042
  8. DEXAMETHASONE [Concomitant]
     Active Substance: DEXAMETHASONE
     Dosage: 3.3 MG, EVERYDAY
     Route: 048
  9. DEXAMETHASONE [Concomitant]
     Active Substance: DEXAMETHASONE
     Dosage: 6.6 MG, EVERYDAY
     Route: 048

REACTIONS (3)
  - Encephalopathy [Recovered/Resolved]
  - Renal impairment [Unknown]
  - Drug interaction [Recovered/Resolved]
